FAERS Safety Report 20854523 (Version 1)
Quarter: 2022Q2

REPORT INFORMATION
  Report Type: Spontaneous
  Country: US (occurrence: None)
  Receive Date: 20220519
  Receipt Date: 20220519
  Transmission Date: 20220721
  Serious: No
  Sender: FDA-Public Use
  Company Number: None

PATIENT
  Sex: Female

DRUGS (1)
  1. HUMIRA [Suspect]
     Active Substance: ADALIMUMAB
     Indication: Palmoplantar pustulosis
     Dosage: FREQUENCY : AS DIRECTED;?
     Route: 058

REACTIONS (5)
  - Drug ineffective [None]
  - Fatigue [None]
  - Myalgia [None]
  - Neck pain [None]
  - Arthralgia [None]
